FAERS Safety Report 25452257 (Version 1)
Quarter: 2025Q2

REPORT INFORMATION
  Report Type: Spontaneous
  Country: US (occurrence: None)
  Receive Date: 20250618
  Receipt Date: 20250618
  Transmission Date: 20250716
  Serious: Yes (Hospitalization)
  Sender: FDA-CTU
  Company Number: None

PATIENT
  Sex: Male

DRUGS (3)
  1. MYCOPHENOLATE MOFETIL [Suspect]
     Active Substance: MYCOPHENOLATE MOFETIL
     Indication: Renal transplant
     Dosage: TAKE 1 TABLET BY MOUTH TWICE DAILY?
     Route: 048
     Dates: start: 20170816
  2. TACROLIMUS [Concomitant]
     Active Substance: TACROLIMUS
  3. TACROLIMUS A [Concomitant]

REACTIONS (4)
  - Fall [None]
  - Contusion [None]
  - Disorientation [None]
  - Mental status changes [None]
